FAERS Safety Report 17829763 (Version 1)
Quarter: 2020Q2

REPORT INFORMATION
  Report Type: Report from Study
  Country: CN (occurrence: CN)
  Receive Date: 20200527
  Receipt Date: 20200527
  Transmission Date: 20200714
  Serious: Yes (Other)
  Sender: FDA-Public Use
  Company Number: CN-JNJFOC-20200518194

PATIENT
  Age: 38 Year
  Sex: Male
  Weight: 56.6 kg

DRUGS (2)
  1. SIRTURO [Suspect]
     Active Substance: BEDAQUILINE FUMARATE
     Route: 048
     Dates: start: 202003
  2. SIRTURO [Suspect]
     Active Substance: BEDAQUILINE FUMARATE
     Indication: TUBERCULOSIS
     Route: 048
     Dates: start: 20200213, end: 202002

REACTIONS (1)
  - Hepatotoxicity [Recovered/Resolved]

NARRATIVE: CASE EVENT DATE: 20200226
